FAERS Safety Report 25499506 (Version 1)
Quarter: 2025Q2

REPORT INFORMATION
  Report Type: Spontaneous
  Country: US (occurrence: None)
  Receive Date: 20250627
  Receipt Date: 20250627
  Transmission Date: 20250717
  Serious: No
  Sender: FDA-CTU
  Company Number: None

PATIENT
  Age: 59 Year
  Sex: Female
  Weight: 56.25 kg

DRUGS (1)
  1. ICY HOT ORIGINAL FOAM [Suspect]
     Active Substance: MENTHOL
     Indication: Myalgia
     Route: 061

REACTIONS (3)
  - Chemical burn of skin [None]
  - Blister [None]
  - Pain [None]

NARRATIVE: CASE EVENT DATE: 20250627
